FAERS Safety Report 8131066-3 (Version None)
Quarter: 2012Q1

REPORT INFORMATION
  Report Type: 
  Country: None (occurrence: None)
  Receive Date: 20120209
  Receipt Date: 20120209
  Transmission Date: 20120608
  Serious: No
  Sender: FDA-Public Use
  Company Number: None

PATIENT
  Age: 50 Year
  Sex: Female
  Weight: 87.0906 kg

DRUGS (1)
  1. HUMIRA [Suspect]
     Indication: RHEUMATOID ARTHRITIS
     Dosage: 40MG IV
     Route: 042
     Dates: start: 20111121

REACTIONS (10)
  - BLINDNESS [None]
  - UVEITIS [None]
  - HYPERSENSITIVITY [None]
  - PHOTOPSIA [None]
  - HAEMORRHOIDS [None]
  - VITREOUS FLOATERS [None]
  - VISION BLURRED [None]
  - MUSCLE SPASMS [None]
  - HEADACHE [None]
  - DRUG EFFECT DECREASED [None]
